FAERS Safety Report 8615770-6 (Version None)
Quarter: 2012Q3

REPORT INFORMATION
  Report Type: 
  Country: None (occurrence: None)
  Receive Date: 20120823
  Receipt Date: 20120814
  Transmission Date: 20120928
  Serious: Yes (Hospitalization, Other)
  Sender: FDA-Public Use
  Company Number: US-009507513-1203USA00310

PATIENT

DRUGS (6)
  1. RALOXIFENE HYDROCHLORIDE [Concomitant]
     Dosage: 60 MG, UNK
     Route: 048
     Dates: start: 20010730, end: 20111212
  2. MULTI-VITAMINS [Concomitant]
     Dosage: UNK
     Dates: start: 19900101
  3. ATENOLOL [Concomitant]
     Indication: HYPERTENSION
     Dosage: UNK
     Dates: start: 19950101
  4. ALENDRONATE SODIUM [Suspect]
     Indication: PROPHYLAXIS
     Dosage: 70 MG, UNK
     Route: 048
     Dates: start: 20081101, end: 20110901
  5. FOSAMAX [Suspect]
     Indication: PROPHYLAXIS
     Dosage: 70 MG, QW
     Route: 048
     Dates: start: 20010801, end: 20080801
  6. NEXIUM [Concomitant]
     Indication: GASTROOESOPHAGEAL REFLUX DISEASE
     Dosage: UNK
     Dates: start: 19950101

REACTIONS (28)
  - FEMUR FRACTURE [None]
  - DEVICE MALFUNCTION [None]
  - OSTEOARTHRITIS [None]
  - PANCREATITIS ACUTE [None]
  - CHOLECYSTITIS CHRONIC [None]
  - EPICONDYLITIS [None]
  - AORTIC ARTERIOSCLEROSIS [None]
  - HALLUCINATION [None]
  - DEPRESSION [None]
  - HYPERLIPIDAEMIA [None]
  - DELIRIUM [None]
  - SUBARACHNOID HAEMORRHAGE [None]
  - OEDEMA PERIPHERAL [None]
  - INTERVERTEBRAL DISC DEGENERATION [None]
  - HYPERTENSIVE HEART DISEASE [None]
  - VENOUS ANGIOMA OF BRAIN [None]
  - LOW TURNOVER OSTEOPATHY [None]
  - KNEE ARTHROPLASTY [None]
  - HAEMORRHAGIC ANAEMIA [None]
  - ANXIETY [None]
  - ADVERSE EVENT [None]
  - TRANSIENT ISCHAEMIC ATTACK [None]
  - ARTHROPATHY [None]
  - TOOTH DISORDER [None]
  - CHOLECYSTECTOMY [None]
  - FALL [None]
  - CEREBRAL ISCHAEMIA [None]
  - RENAL ATROPHY [None]
